FAERS Safety Report 5329558-5 (Version None)
Quarter: 2007Q1

REPORT INFORMATION
  Report Type: 
  Country: None (occurrence: None)
  Receive Date: 20070227
  Receipt Date: 20061031
  Transmission Date: 20070707
  Serious: Yes (Other)
  Sender: FDA-Public Use
  Company Number: 470044

PATIENT
  Age: 16 Year
  Sex: Male

DRUGS (3)
  1. ACCUTANE [Suspect]
     Indication: ACNE CYSTIC
     Dosage: 40 MG 2 PER 1 DAY ORAL
     Route: 048
     Dates: start: 20060525, end: 20060915
  2. DIFFERIN GEL (ADAPALENE) [Concomitant]
  3. RETIN-A [Concomitant]

REACTIONS (1)
  - DEPRESSION [None]
